FAERS Safety Report 8718282 (Version 2)
Quarter: 2012Q4

REPORT INFORMATION
  Report Type: Spontaneous
  Country: JP (occurrence: None)
  Receive Date: 20120726
  Receipt Date: 20120831
  Transmission Date: 20130627
  Serious: Yes (Other)
  Sender: FDA-Public Use
  Company Number: 1344827

PATIENT
  Age: 5 Day
  Sex: Male
  Weight: 3 kg

DRUGS (2)
  1. PRECEDEX [Suspect]
     Indication: SEDATION
     Dosage: INTRAVENOUS DRIP
     Route: 041
  2. MIDAZOLAM [Concomitant]

REACTIONS (4)
  - Epilepsy [None]
  - Dyskinesia neonatal [None]
  - Blood pressure increased [None]
  - Oxygen saturation decreased [None]
